FAERS Safety Report 16569808 (Version 1)
Quarter: 2019Q3

REPORT INFORMATION
  Report Type: Spontaneous
  Country: US (occurrence: US)
  Receive Date: 20190531
  Receipt Date: 20190531
  Transmission Date: 20191004
  Serious: Yes (Hospitalization)
  Sender: FDA-Public Use
  Company Number: None

PATIENT
  Age: 61 Year
  Sex: Male
  Weight: 79 kg

DRUGS (1)
  1. QUETIAPINE. [Suspect]
     Active Substance: QUETIAPINE
     Indication: MENTAL DISORDER
     Dates: start: 20110317, end: 20181011

REACTIONS (5)
  - Electrocardiogram QT prolonged [None]
  - Dyspnoea [None]
  - Mental status changes [None]
  - Tachycardia [None]
  - Intentional overdose [None]

NARRATIVE: CASE EVENT DATE: 20181012
